FAERS Safety Report 7603172-0 (Version None)
Quarter: 2011Q3

REPORT INFORMATION
  Report Type: 
  Country: None (occurrence: None)
  Receive Date: 20110712
  Receipt Date: 20110628
  Transmission Date: 20111222
  Serious: Yes (Other)
  Sender: FDA-Public Use
  Company Number: US-AMGEN-USASP2011033177

PATIENT
  Age: 88 Year
  Sex: Female

DRUGS (14)
  1. CALCIUM WITH VITAMIN D             /00944201/ [Concomitant]
     Dosage: 2 MG, QD
  2. METFORMIN HCL [Concomitant]
     Dosage: 1 UNK, QD
  3. OMEGA 3                            /00931501/ [Concomitant]
     Dosage: 1 UNK, QD
  4. PROLIA [Suspect]
     Indication: OSTEOPOROSIS POSTMENOPAUSAL
     Dosage: 60 MG, Q6MO
     Dates: start: 20110126
  5. GLIMEPIRIDE [Concomitant]
     Dosage: 2 UNK, BID
     Dates: end: 20110101
  6. SIMVASTATIN [Concomitant]
     Dosage: 40 MG, QD
     Dates: start: 20110620
  7. SIMVASTATIN [Concomitant]
     Dosage: 20 MG, UNK
  8. AYR                                /00083601/ [Concomitant]
  9. ASPIRIN [Concomitant]
     Dosage: 1 MG, QD
  10. GLIPIZIDE [Concomitant]
     Dosage: 2 MG, QD
  11. OMEPRAZOLE [Concomitant]
  12. GLIPIZIDE [Concomitant]
     Dosage: 5 MG, BID
  13. VITAMIN A [Concomitant]
     Dosage: 1 IU, QD
  14. PATADAY [Concomitant]
     Route: 047

REACTIONS (18)
  - WEIGHT DECREASED [None]
  - HEADACHE [None]
  - PAIN [None]
  - BLOOD CHOLESTEROL DECREASED [None]
  - FATIGUE [None]
  - ASTHENIA [None]
  - PRURITUS [None]
  - HYPOAESTHESIA [None]
  - HYPERSOMNIA [None]
  - MYALGIA [None]
  - SINUSITIS [None]
  - PARAESTHESIA [None]
  - BLOOD GLUCOSE DECREASED [None]
  - INFECTION [None]
  - MALAISE [None]
  - GASTROENTERITIS VIRAL [None]
  - INFECTION SUSCEPTIBILITY INCREASED [None]
  - HYPOTHYROIDISM [None]
